FAERS Safety Report 10243294 (Version 2)
Quarter: 2014Q2

REPORT INFORMATION
  Report Type: Spontaneous
  Country: DE (occurrence: DE)
  Receive Date: 20140618
  Receipt Date: 20140618
  Transmission Date: 20141212
  Serious: Yes (Hospitalization)
  Sender: FDA-Public Use
  Company Number: PHHY2014DE071499

PATIENT
  Age: 62 Year
  Sex: Male
  Weight: 72 kg

DRUGS (7)
  1. EXJADE [Suspect]
     Indication: ANAEMIA
     Dosage: 500, 3 TABLETS DAILY FOR SOME TIME
     Route: 048
  2. EXJADE [Suspect]
     Dosage: 500, 2 TABLETS DAILY FOR ONE WEEK
     Route: 048
  3. EXJADE [Suspect]
     Dosage: 500, 3 TABLETS DAILY FOR ONE WEEK
     Route: 048
  4. EXJADE [Suspect]
     Dosage: 500, 2 TABLETS DAILY
     Route: 048
  5. VITAMIIN C [Concomitant]
     Dosage: 200 MG, DAILY
  6. ZINC [Concomitant]
     Dosage: 5 MG, FROM TIME TO TIME
  7. MAGNESIUM [Concomitant]
     Dosage: UNK UKN, UNK

REACTIONS (2)
  - Cystitis [Unknown]
  - Renal function test abnormal [Unknown]
